FAERS Safety Report 6811164-4 (Version None)
Quarter: 2010Q2

REPORT INFORMATION
  Report Type: 
  Country: None (occurrence: None)
  Receive Date: 20100630
  Receipt Date: 20090721
  Transmission Date: 20101027
  Serious: No
  Sender: FDA-Public Use
  Company Number: US-AMGEN-KDL357113

PATIENT
  Sex: Female
  Weight: 49.9 kg

DRUGS (6)
  1. PROCRIT [Suspect]
     Indication: ANAEMIA
     Dates: start: 20090701
  2. PROGRAF [Concomitant]
  3. CELLCEPT [Concomitant]
  4. FLUCONAZOLE [Concomitant]
  5. OMEPRAZOLE [Concomitant]
  6. UNSPECIFIED ANTIBIOTIC [Concomitant]

REACTIONS (1)
  - INJECTION SITE PAIN [None]
